FAERS Safety Report 5646788-3 (Version None)
Quarter: 2008Q1

REPORT INFORMATION
  Report Type: 
  Country: None (occurrence: None)
  Receive Date: 20080303
  Receipt Date: 20080226
  Transmission Date: 20080703
  Serious: Yes (Hospitalization)
  Sender: FDA-Public Use
  Company Number: FR-AVENTIS-200810916EU

PATIENT
  Age: 86 Year
  Sex: Female

DRUGS (4)
  1. FLUDEX                             /00340101/ [Suspect]
     Indication: HYPERTENSION
     Route: 048
     Dates: end: 20070403
  2. AMIODARONE HCL [Suspect]
     Indication: ARRHYTHMIA
     Dosage: DOSE: UNK
     Route: 048
     Dates: start: 20070305, end: 20070315
  3. TAREG [Suspect]
     Indication: HYPERTENSION
     Dosage: DOSE: UNK
     Route: 048
     Dates: end: 20070403
  4. ISOPTIN [Suspect]
     Indication: ARRHYTHMIA
     Dosage: DOSE: UNK
     Route: 048
     Dates: start: 20070301, end: 20070403

REACTIONS (3)
  - BRADYCARDIA [None]
  - FALL [None]
  - HYPOTENSION [None]
